FAERS Safety Report 10448484 (Version 1)
Quarter: 2014Q3

REPORT INFORMATION
  Report Type: Spontaneous
  Country: US (occurrence: US)
  Receive Date: 20140911
  Receipt Date: 20140911
  Transmission Date: 20150326
  Serious: Yes (Hospitalization)
  Sender: FDA-Public Use
  Company Number: US-B.I. PHARMACEUTICALS,INC./RIDGEFIELD-2014-BI-42404BP

PATIENT
  Age: 81 Year
  Sex: Male

DRUGS (2)
  1. INDOCIN [Suspect]
     Active Substance: INDOMETHACIN\INDOMETHACIN SODIUM
     Indication: GOUT
     Route: 065
     Dates: end: 20121217
  2. PRADAXA [Suspect]
     Active Substance: DABIGATRAN ETEXILATE MESYLATE
     Indication: ATRIAL FIBRILLATION
     Route: 065
     Dates: end: 20121217

REACTIONS (6)
  - Haemorrhagic anaemia [Not Recovered/Not Resolved]
  - Gastritis [Unknown]
  - Diverticulum [Recovered/Resolved]
  - Renal failure acute [Not Recovered/Not Resolved]
  - Gastrointestinal haemorrhage [Recovered/Resolved]
  - Renal failure [Not Recovered/Not Resolved]

NARRATIVE: CASE EVENT DATE: 20121217
